FAERS Safety Report 23996340 (Version 2)
Quarter: 2024Q3

REPORT INFORMATION
  Report Type: Spontaneous
  Country: ES (occurrence: ES)
  Receive Date: 20240620
  Receipt Date: 20240718
  Transmission Date: 20241016
  Serious: Yes (Hospitalization)
  Sender: BAUSCH AND LOMB
  Company Number: ES-AstraZeneca-2024A131997

PATIENT
  Age: 64 Year
  Sex: Male

DRUGS (4)
  1. ENALAPRIL [Suspect]
     Active Substance: ENALAPRIL
     Indication: Stress cardiomyopathy
     Dosage: 20 MILLIGRAM
     Route: 065
  2. ROSUVASTATIN [Suspect]
     Active Substance: ROSUVASTATIN
     Indication: Stress cardiomyopathy
     Dosage: 10 MILLIGRAM
     Route: 065
  3. BISOPROLOL [Concomitant]
     Active Substance: BISOPROLOL\BISOPROLOL FUMARATE
     Indication: Stress cardiomyopathy
     Dosage: 2.5 MILLIGRAM
     Route: 065
  4. ASPIRIN [Concomitant]
     Active Substance: ASPIRIN
     Indication: Stress cardiomyopathy
     Dosage: 100 MILLIGRAM
     Route: 065

REACTIONS (1)
  - Anaphylactic shock [Recovering/Resolving]
